FAERS Safety Report 5232851-8 (Version None)
Quarter: 2007Q1

REPORT INFORMATION
  Report Type: 
  Country: None (occurrence: None)
  Receive Date: 20070207
  Receipt Date: 20070126
  Transmission Date: 20070707
  Serious: Yes (Hospitalization, Other)
  Sender: FDA-Public Use
  Company Number: GB-JNJFOC-20060806684

PATIENT
  Sex: Male
  Weight: 106 kg

DRUGS (4)
  1. RISPERDAL CONSTA [Suspect]
     Route: 030
  2. RISPERDAL CONSTA [Suspect]
     Indication: BIPOLAR DISORDER
     Route: 030
  3. ECSTASY [Concomitant]
     Dosage: 35 IN ONE GO
  4. CANNABIS [Concomitant]
     Route: 065

REACTIONS (1)
  - CONGESTIVE CARDIOMYOPATHY [None]
